FAERS Safety Report 4945674-1 (Version None)
Quarter: 2006Q1

REPORT INFORMATION
  Report Type: 
  Country: None (occurrence: None)
  Receive Date: 20060117
  Receipt Date: 20050829
  Transmission Date: 20060701
  Serious: Yes (Hospitalization)
  Sender: FDA-Public Use
  Company Number: A03200502685

PATIENT
  Age: 80 Year
  Sex: Female
  Weight: 65.3 kg

DRUGS (3)
  1. PLAVIX [Suspect]
     Indication: CATHETERISATION CARDIAC
     Dosage: 75MG QD ORAL
     Route: 048
     Dates: start: 20050805
  2. FUROSEMIDE [Concomitant]
  3. ATORVASTATIN [Concomitant]

REACTIONS (1)
  - INTESTINAL HAEMORRHAGE [None]
